FAERS Safety Report 9554331 (Version 1)
Quarter: 2013Q3

REPORT INFORMATION
  Report Type: Report from Study
  Country: US (occurrence: US)
  Receive Date: 20130925
  Receipt Date: 20130925
  Transmission Date: 20140515
  Serious: Yes (Death, Other)
  Sender: FDA-Public Use
  Company Number: US-ABBVIE-13P-163-1151331-00

PATIENT
  Sex: Male

DRUGS (2)
  1. ZEMPLAR [Suspect]
     Indication: PRODUCT USED FOR UNKNOWN INDICATION
     Dates: end: 20111020
  2. ZEMPLAR [Suspect]
     Dosage: INCREASED TO DAILY DOSING
     Dates: start: 20111020

REACTIONS (2)
  - Death [Fatal]
  - Neoplasm malignant [Unknown]
